FAERS Safety Report 8959778 (Version 1)
Quarter: 2012Q4

REPORT INFORMATION
  Report Type: Report from Study
  Country: US (occurrence: US)
  Receive Date: 20121212
  Receipt Date: 20121212
  Transmission Date: 20130627
  Serious: Yes (Other)
  Sender: FDA-Public Use
  Company Number: US-ROCHE-1130479

PATIENT
  Sex: Female
  Weight: 76.27 kg

DRUGS (3)
  1. CAPECITABINE [Suspect]
     Indication: BREAST CANCER METASTATIC
     Dosage: 4 Pills in the am, 4 Pills in the pm
     Route: 048
     Dates: start: 20120822
  2. CAPECITABINE [Suspect]
     Route: 048
     Dates: start: 20120823
  3. CAPECITABINE [Suspect]
     Route: 048
     Dates: end: 201211

REACTIONS (4)
  - Disease progression [Not Recovered/Not Resolved]
  - Alopecia [Unknown]
  - Dysphonia [Not Recovered/Not Resolved]
  - Rash [Recovered/Resolved]
